FAERS Safety Report 10220567 (Version 1)
Quarter: 2014Q2

REPORT INFORMATION
  Report Type: Spontaneous
  Country: US (occurrence: None)
  Receive Date: 20140605
  Receipt Date: 20140605
  Transmission Date: 20141212
  Serious: No
  Sender: FDA-Public Use
  Company Number: None

PATIENT
  Age: 53 Year
  Sex: Male
  Weight: 121.56 kg

DRUGS (4)
  1. ARIPIPRAZOLE ABILIFY 20 MG B.M.S.P.C. OTSUKA [Suspect]
     Indication: POST-TRAUMATIC STRESS DISORDER
     Dates: start: 20140314
  2. IRON [Concomitant]
  3. POTASSIUM [Concomitant]
  4. HYPOGLYCEMIC [Concomitant]

REACTIONS (21)
  - Dizziness [None]
  - Dyspnoea [None]
  - Rectal haemorrhage [None]
  - Blood pressure increased [None]
  - Depression [None]
  - Nausea [None]
  - Abdominal discomfort [None]
  - Tremor [None]
  - Unevaluable event [None]
  - Muscle spasms [None]
  - Bruxism [None]
  - Dehydration [None]
  - Thirst [None]
  - Constipation [None]
  - Gastrointestinal pain [None]
  - Prostatic pain [None]
  - Testicular pain [None]
  - Photosensitivity reaction [None]
  - Weight increased [None]
  - Vision blurred [None]
  - Arthritis [None]
